FAERS Safety Report 9822906 (Version 2)
Quarter: 2014Q1

REPORT INFORMATION
  Report Type: Spontaneous
  Country: US (occurrence: US)
  Receive Date: 20140116
  Receipt Date: 20140116
  Transmission Date: 20141002
  Serious: No
  Sender: FDA-Public Use
  Company Number: US-GILEAD-2010-0032997

PATIENT
  Age: 58 Year
  Sex: Female

DRUGS (19)
  1. LETAIRIS [Suspect]
     Indication: PULMONARY ARTERIAL HYPERTENSION
     Route: 048
     Dates: start: 20100521
  2. ASPIRIN [Concomitant]
  3. PLAVIX [Concomitant]
  4. PRAVACHOL [Concomitant]
  5. ADVAIR [Concomitant]
  6. IPRATROPIUM BROMIDE/SALBUTAMOL SULFATE [Concomitant]
  7. PREDNISONE [Concomitant]
  8. NOVOLIN R [Concomitant]
  9. PHENERGAN [Concomitant]
  10. PRILOSEC [Concomitant]
  11. DILAUDID [Concomitant]
  12. CYMBALTA [Concomitant]
  13. KLONOPIN [Concomitant]
  14. ATIVAN [Concomitant]
  15. AMBIEN [Concomitant]
  16. CIPRO [Concomitant]
  17. CELLCEPT [Concomitant]
  18. CYCLOSPORINE [Concomitant]
  19. VITAMIN C [Concomitant]

REACTIONS (1)
  - Hypotension [Unknown]
